FAERS Safety Report 13077095 (Version 1)
Quarter: 2016Q4

REPORT INFORMATION
  Report Type: Spontaneous
  Country: KR (occurrence: KR)
  Receive Date: 20161230
  Receipt Date: 20161230
  Transmission Date: 20170207
  Serious: Yes (Hospitalization, Other)
  Sender: FDA-Public Use
  Company Number: KR-009507513-1612KOR015156

PATIENT
  Age: 38 Year
  Sex: Male

DRUGS (5)
  1. FENTANYL. [Concomitant]
     Active Substance: FENTANYL
     Indication: ANALGESIC THERAPY
     Dosage: 50 MICROGRAM, UNK
  2. SEVOFLURANE. [Concomitant]
     Active Substance: SEVOFLURANE
     Indication: MAINTENANCE OF ANAESTHESIA
  3. PROPOFOL. [Concomitant]
     Active Substance: PROPOFOL
     Dosage: 120 MG, ONCE
  4. LIDOCAINE. [Concomitant]
     Active Substance: LIDOCAINE
     Dosage: 30 MG, UNK
  5. ROCURONIUM BROMIDE. [Suspect]
     Active Substance: ROCURONIUM BROMIDE
     Indication: MAINTENANCE OF ANAESTHESIA
     Dosage: 50 MG, ONCE

REACTIONS (1)
  - Pulmonary oedema [Recovered/Resolved]
